FAERS Safety Report 5006849-9 (Version None)
Quarter: 2006Q2

REPORT INFORMATION
  Report Type: 
  Country: None (occurrence: None)
  Receive Date: 20060516
  Receipt Date: 20060503
  Transmission Date: 20061013
  Serious: Yes (Death, Hospitalization)
  Sender: FDA-Public Use
  Company Number: S06-FRA-01387-01

PATIENT
  Age: 26 Year
  Sex: Female

DRUGS (7)
  1. SEROPLEX (ESCITALOPRAM) [Suspect]
     Dosage: 15 MG QD PO
     Route: 048
     Dates: start: 20060303, end: 20060317
  2. TIAPRIDAL (TIAPRIDE) [Suspect]
     Dosage: 100 MG QD PO
     Route: 048
     Dates: start: 20060303, end: 20060317
  3. ARIPIPRAZOLE [Suspect]
     Dosage: 15 MG QD PO
     Route: 048
     Dates: start: 20060309, end: 20060317
  4. CYTOTEC [Suspect]
     Dosage: 400 MCG BID
     Dates: start: 20060209
  5. MIFEPRISTONE [Suspect]
     Dosage: 600 MG QD PO
     Route: 048
     Dates: start: 20060207, end: 20060207
  6. PRAZEPAM [Concomitant]
  7. IMOVANE (ZOPICLONE) [Concomitant]

REACTIONS (14)
  - BACK PAIN [None]
  - BLOOD CREATINE PHOSPHOKINASE INCREASED [None]
  - BLOOD HUMAN CHORIONIC GONADOTROPIN POSITIVE [None]
  - CARDIO-RESPIRATORY ARREST [None]
  - CHILLS [None]
  - DELUSION [None]
  - DRUG EXPOSURE DURING PREGNANCY [None]
  - FEELING HOT [None]
  - LACTIC ACIDOSIS [None]
  - MALAISE [None]
  - METRORRHAGIA [None]
  - MULTI-ORGAN FAILURE [None]
  - RETAINED PLACENTA OR MEMBRANES [None]
  - SEPSIS [None]
